FAERS Safety Report 6627649-X (Version None)
Quarter: 2010Q1

REPORT INFORMATION
  Report Type: 
  Country: None (occurrence: None)
  Receive Date: 20100311
  Receipt Date: 20100304
  Transmission Date: 20100710
  Serious: Yes (Hospitalization)
  Sender: FDA-Public Use
  Company Number: US-BAYER-201013787NA

PATIENT
  Age: 56 Year
  Sex: Female
  Weight: 56 kg

DRUGS (5)
  1. SORAFENIB [Suspect]
     Indication: PANCREATIC CARCINOMA METASTATIC
     Dosage: TOTAL DAILY DOSE: 400 MG  UNIT DOSE: 200 MG
     Route: 048
     Dates: start: 20100104, end: 20100131
  2. OXALIPLATIN [Suspect]
     Indication: PANCREATIC CARCINOMA METASTATIC
     Dosage: ONCE EVERY 2 WEEKS
     Route: 042
     Dates: start: 20100118, end: 20100118
  3. CAPECITABINE [Suspect]
     Indication: PANCREATIC CARCINOMA METASTATIC
     Dosage: TOTAL DAILY DOSE: 105000 MG
     Route: 048
     Dates: start: 20100118, end: 20100120
  4. CAPECITABINE [Suspect]
     Dosage: TOTAL DAILY DOSE: 105000 MG
     Route: 048
     Dates: start: 20100104, end: 20100106
  5. HEPARIN [Concomitant]

REACTIONS (14)
  - ABDOMINAL ABSCESS [None]
  - ALANINE AMINOTRANSFERASE INCREASED [None]
  - ASPARTATE AMINOTRANSFERASE INCREASED [None]
  - BLOOD ALKALINE PHOSPHATASE INCREASED [None]
  - CACHEXIA [None]
  - DISEASE PROGRESSION [None]
  - HYPERBILIRUBINAEMIA [None]
  - HYPOALBUMINAEMIA [None]
  - HYPOCALCAEMIA [None]
  - HYPOGLYCAEMIA [None]
  - HYPOKALAEMIA [None]
  - HYPONATRAEMIA [None]
  - ILEUS PARALYTIC [None]
  - THROMBOCYTOPENIA [None]
